FAERS Safety Report 21120948 (Version 1)
Quarter: 2022Q3

REPORT INFORMATION
  Report Type: Report from Study
  Country: US (occurrence: US)
  Receive Date: 20220722
  Receipt Date: 20220722
  Transmission Date: 20221027
  Serious: No
  Sender: FDA-Public Use
  Company Number: US-MIRM-000394

PATIENT
  Sex: Female
  Weight: 21.319 kg

DRUGS (5)
  1. LIVMARLI [Suspect]
     Active Substance: MARALIXIBAT CHLORIDE
     Indication: Pruritus
     Route: 048
     Dates: start: 2022
  2. 1328777 (GLOBALC3Sep19): Ursodiol [Concomitant]
     Indication: Product used for unknown indication
  3. 1328870 (GLOBALC3Sep19): Vitamin D [Concomitant]
     Indication: Product used for unknown indication
  4. 4052153 (GLOBALC3Sep19): Pediasure [Concomitant]
     Indication: Product used for unknown indication
  5. 1325420 (GLOBALC3Sep19): Cholestyramine [Concomitant]
     Indication: Product used for unknown indication

REACTIONS (1)
  - Skin exfoliation [Unknown]

NARRATIVE: CASE EVENT DATE: 20220101
